FAERS Safety Report 10960715 (Version 4)
Quarter: 2015Q2

REPORT INFORMATION
  Report Type: Spontaneous
  Country: US (occurrence: US)
  Receive Date: 20150327
  Receipt Date: 20150619
  Transmission Date: 20150821
  Serious: Yes (Hospitalization, Other)
  Sender: FDA-Public Use
  Company Number: US-009507513-1109USA02412

PATIENT
  Sex: Female

DRUGS (4)
  1. ALENDRONATE SODIUM. [Suspect]
     Active Substance: ALENDRONATE SODIUM
     Indication: OSTEOPOROSIS
     Dosage: UNK
     Route: 048
     Dates: start: 200802, end: 2010
  2. ALENDRONATE SODIUM. [Suspect]
     Active Substance: ALENDRONATE SODIUM
     Indication: OSTEOPOROSIS
     Dosage: UNK
     Dates: start: 200802, end: 2010
  3. ALENDRONATE SODIUM. [Suspect]
     Active Substance: ALENDRONATE SODIUM
     Indication: OSTEOPOROSIS
     Dosage: UNK
     Dates: start: 200802, end: 2010
  4. FOSAMAX [Suspect]
     Active Substance: ALENDRONATE SODIUM
     Indication: OSTEOPOROSIS
     Dosage: 70 MG, UNK
     Route: 048
     Dates: start: 20010411, end: 2005

REACTIONS (16)
  - Intervertebral disc disorder [Unknown]
  - Osteoarthritis [Unknown]
  - Aortic calcification [Unknown]
  - Nasal disorder [Unknown]
  - Hip arthroplasty [Unknown]
  - Fall [Unknown]
  - Spondylolisthesis [Unknown]
  - Supraventricular tachycardia [Unknown]
  - Culture urine positive [Unknown]
  - Anaemia [Unknown]
  - Low turnover osteopathy [Unknown]
  - Gallbladder disorder [Unknown]
  - Vertigo positional [Unknown]
  - Uterine disorder [Unknown]
  - Femur fracture [Unknown]
  - Gastrooesophageal reflux disease [Unknown]

NARRATIVE: CASE EVENT DATE: 2005
